FAERS Safety Report 6936169-4 (Version None)
Quarter: 2010Q3

REPORT INFORMATION
  Report Type: 
  Country: None (occurrence: None)
  Receive Date: 20100817
  Receipt Date: 20100623
  Transmission Date: 20110219
  Serious: Yes (Other)
  Sender: FDA-Public Use
  Company Number: WAES 1006USA03716

PATIENT
  Age: 39 Year
  Sex: Male
  Weight: 97.977 kg

DRUGS (4)
  1. ISENTRESS [Suspect]
     Indication: HIV INFECTION
     Dosage: 400 MG/BID/PO
     Route: 048
     Dates: start: 20100322, end: 20100419
  2. EPZICOM [Concomitant]
  3. SUBOXONE [Concomitant]
  4. WELLBUTRIN [Concomitant]

REACTIONS (3)
  - DIARRHOEA [None]
  - FATIGUE [None]
  - RENAL FAILURE ACUTE [None]
